FAERS Safety Report 23059088 (Version 2)
Quarter: 2023Q4

REPORT INFORMATION
  Report Type: Spontaneous
  Country: CA (occurrence: CA)
  Receive Date: 20231012
  Receipt Date: 20231108
  Transmission Date: 20240109
  Serious: Yes (Other)
  Sender: FDA-Public Use
  Company Number: CA-CELLTRION INC.-2023CA019276

PATIENT

DRUGS (4)
  1. INFLECTRA [Suspect]
     Active Substance: INFLIXIMAB-DYYB
     Indication: Crohn^s disease
     Dosage: 300 MG, (5MG/KG) EVERY 8 WEEKS
     Route: 042
     Dates: start: 20230602
  2. INFLECTRA [Suspect]
     Active Substance: INFLIXIMAB-DYYB
     Dosage: 300 MG, EVERY 8 WEEKS
     Route: 042
     Dates: start: 20230802
  3. INFLECTRA [Suspect]
     Active Substance: INFLIXIMAB-DYYB
     Dosage: 300 MG, EVERY 8 WEEKS
     Route: 042
     Dates: start: 20230802
  4. METHOTREXATE [Concomitant]
     Active Substance: METHOTREXATE
     Indication: Crohn^s disease
     Dosage: 12.5 MG, WEEKLY INJECTIONS (1 DF)

REACTIONS (3)
  - Condition aggravated [Unknown]
  - Oral infection [Recovered/Resolved]
  - Pyrexia [Recovered/Resolved]

NARRATIVE: CASE EVENT DATE: 20230101
